FAERS Safety Report 4326082-3 (Version None)
Quarter: 2004Q1

REPORT INFORMATION
  Report Type: 
  Country: None (occurrence: None)
  Receive Date: 20040323
  Receipt Date: 20040309
  Transmission Date: 20041129
  Serious: Yes (Other)
  Sender: FDA-Public Use
  Company Number: 2004016599

PATIENT
  Age: 37 Year
  Sex: Female
  Weight: 89.3586 kg

DRUGS (4)
  1. ZOLOFT [Suspect]
     Indication: DEPRESSION
     Dosage: 100 MG (DAILY), ORAL
     Route: 048
     Dates: start: 20010901, end: 20040201
  2. OXYCODONE HCL [Concomitant]
  3. IBUPROFEN [Concomitant]
  4. VICODIN [Concomitant]

REACTIONS (4)
  - AMENORRHOEA [None]
  - BREAST LUMP REMOVAL [None]
  - NEOPLASM GROWTH ACCELERATED [None]
  - WEIGHT DECREASED [None]
